FAERS Safety Report 14851370 (Version 1)
Quarter: 2018Q2

REPORT INFORMATION
  Report Type: Report from Study
  Country: PK (occurrence: PK)
  Receive Date: 20180507
  Receipt Date: 20180507
  Transmission Date: 20180711
  Serious: Yes (Other)
  Sender: FDA-Public Use
  Company Number: PK-REGENERON PHARMACEUTICALS, INC.-2018-22767

PATIENT

DRUGS (1)
  1. EYLEA [Suspect]
     Active Substance: AFLIBERCEPT
     Indication: DIABETIC RETINOPATHY
     Dosage: UNK
     Route: 047

REACTIONS (3)
  - Endophthalmitis [Unknown]
  - Blindness [Unknown]
  - Retinal detachment [Unknown]
